FAERS Safety Report 17942256 (Version 4)
Quarter: 2020Q4

REPORT INFORMATION
  Report Type: Report from Study
  Country: ZA (occurrence: ZA)
  Receive Date: 20200624
  Receipt Date: 20201209
  Transmission Date: 20210113
  Serious: Yes (Other)
  Sender: FDA-Public Use
  Company Number: NVSC2020ZA125873

PATIENT
  Sex: Male
  Weight: 105 kg

DRUGS (2)
  1. COSENTYX [Suspect]
     Active Substance: SECUKINUMAB
     Dosage: 300 MG, QMO
     Route: 058
     Dates: start: 20190928
  2. COSENTYX [Suspect]
     Active Substance: SECUKINUMAB
     Indication: PSORIATIC ARTHROPATHY
     Dosage: 150 MG, UNKNOWN
     Route: 065
     Dates: start: 20190828

REACTIONS (5)
  - Psoriasis [Not Recovered/Not Resolved]
  - Diabetes mellitus [Unknown]
  - Hepatic enzyme increased [Recovering/Resolving]
  - Hepatic function abnormal [Unknown]
  - Skin lesion [Unknown]
